FAERS Safety Report 15564669 (Version 1)
Quarter: 2018Q4

REPORT INFORMATION
  Report Type: Spontaneous
  Country: US (occurrence: US)
  Receive Date: 20181030
  Receipt Date: 20181030
  Transmission Date: 20190205
  Serious: No
  Sender: FDA-Public Use
  Company Number: US-APOTEX-2018AP019982

PATIENT

DRUGS (2)
  1. ZYRTEC [Suspect]
     Active Substance: CETIRIZINE HYDROCHLORIDE
     Indication: PRODUCT USED FOR UNKNOWN INDICATION
     Dosage: UNK
     Route: 065
     Dates: end: 201806
  2. FLUTICASONE PROPIONATE NASAL SPRAY USP [Suspect]
     Active Substance: FLUTICASONE PROPIONATE
     Indication: PRODUCT USED FOR UNKNOWN INDICATION
     Dosage: UNK
     Route: 065
     Dates: end: 201806

REACTIONS (6)
  - Increased viscosity of upper respiratory secretion [Recovering/Resolving]
  - Product contamination physical [Unknown]
  - Recalled product administered [Recovering/Resolving]
  - Epistaxis [Recovering/Resolving]
  - Condition aggravated [Recovering/Resolving]
  - Rhinalgia [Recovering/Resolving]

NARRATIVE: CASE EVENT DATE: 201806
